FAERS Safety Report 11259274 (Version 3)
Quarter: 2015Q3

REPORT INFORMATION
  Report Type: Spontaneous
  Country: FR (occurrence: FR)
  Receive Date: 20150710
  Receipt Date: 20150915
  Transmission Date: 20151125
  Serious: Yes (Other)
  Sender: FDA-Public Use
  Company Number: FR-DSJP-DSE-2015-121735

PATIENT

DRUGS (3)
  1. APRANAX                            /00256201/ [Concomitant]
     Active Substance: NAPROXEN
     Indication: ARTHRALGIA
     Dosage: 750 MG, QD
     Route: 048
     Dates: start: 20140604, end: 20140614
  2. OLMETEC [Suspect]
     Active Substance: OLMESARTAN MEDOXOMIL
     Indication: HYPERTENSION
     Dosage: UNK
     Route: 048
     Dates: start: 201406, end: 20150703
  3. AXELER 40 MG/ 5 MG [Suspect]
     Active Substance: AMLODIPINE BESYLATE\OLMESARTAN MEDOXOMIL
     Indication: HYPERTENSION
     Dosage: 40/5 MG, QD
     Route: 048
     Dates: start: 20090105, end: 201406

REACTIONS (9)
  - Hypotension [Recovering/Resolving]
  - Weight decreased [Recovering/Resolving]
  - Hypoproteinaemia [Recovering/Resolving]
  - Gastrointestinal disorder [Recovering/Resolving]
  - General physical health deterioration [Recovering/Resolving]
  - Hypokalaemia [Recovering/Resolving]
  - Dehydration [Recovering/Resolving]
  - Abdominal pain [Recovering/Resolving]
  - Diarrhoea [Recovering/Resolving]

NARRATIVE: CASE EVENT DATE: 20140607
